FAERS Safety Report 9149548 (Version 2)
Quarter: 2013Q1

REPORT INFORMATION
  Report Type: Report from Study
  Country: US (occurrence: US)
  Receive Date: 20130308
  Receipt Date: 20130321
  Transmission Date: 20140127
  Serious: No
  Sender: FDA-Public Use
  Company Number: US-VERTEX PHARMACEUTICALS INC.-2013-003160

PATIENT
  Age: 54 Year
  Sex: Female
  Weight: 70 kg

DRUGS (10)
  1. VX-950 (TELAPREVIR) [Suspect]
     Indication: HEPATITIS C
     Dosage: 750 MG, TID
     Route: 048
     Dates: start: 20130302
  2. PEGASYS [Suspect]
     Indication: HEPATITIS C
     Dosage: UNK
     Dates: start: 20130302
  3. RIBAVIRIN [Suspect]
     Indication: HEPATITIS C
     Dosage: 200 MG, UNK
     Dates: start: 20130302
  4. ALLEGRA [Concomitant]
     Dosage: 180 MG, UNK
  5. ADVAIR DISKU [Concomitant]
     Dosage: DISKU AER 500/50
  6. CALCIUM [Concomitant]
     Dosage: 500 MG, UNK
  7. LYSINE [Concomitant]
     Dosage: 500 MG, UNK
  8. CHLORINE [Concomitant]
     Dosage: 648 MG, UNK
  9. MULTIVITAMIN AND MINERAL [Concomitant]
  10. MILK THISTLE [Concomitant]

REACTIONS (4)
  - Rash [Unknown]
  - Nausea [Unknown]
  - Diarrhoea [Unknown]
  - Vomiting [Unknown]
